FAERS Safety Report 12301327 (Version 1)
Quarter: 2016Q2

REPORT INFORMATION
  Report Type: Spontaneous
  Country: FR (occurrence: FR)
  Receive Date: 20160425
  Receipt Date: 20160425
  Transmission Date: 20160815
  Serious: Yes (Hospitalization)
  Sender: FDA-Public Use
  Company Number: FR-PFIZER INC-2016225264

PATIENT
  Sex: Female

DRUGS (4)
  1. TRAMADOL. [Interacting]
     Active Substance: TRAMADOL
  2. EFFEXOR LP [Suspect]
     Active Substance: VENLAFAXINE HYDROCHLORIDE
     Dosage: 37.5 MG, UNK
  3. LITHIUM. [Interacting]
     Active Substance: LITHIUM
  4. EFFEXOR LP [Interacting]
     Active Substance: VENLAFAXINE HYDROCHLORIDE
     Dosage: 75 MG, UNK

REACTIONS (2)
  - Overdose [Unknown]
  - Drug interaction [Unknown]
